FAERS Safety Report 24802422 (Version 2)
Quarter: 2025Q3

REPORT INFORMATION
  Report Type: Report from Study
  Country: US (occurrence: US)
  Receive Date: 20250103
  Receipt Date: 20250810
  Transmission Date: 20251020
  Serious: Yes (Other)
  Sender: ALEXION PHARMACEUTICALS
  Company Number: US-ASTRAZENECA-202412USA025328US

PATIENT

DRUGS (1)
  1. STRENSIQ [Suspect]
     Active Substance: ASFOTASE ALFA
     Route: 065

REACTIONS (7)
  - Deafness [Unknown]
  - Sinus pain [Unknown]
  - Wheezing [Unknown]
  - Chest pain [Unknown]
  - Palpitations [Unknown]
  - Pruritus [Unknown]
  - Skin exfoliation [Unknown]
